FAERS Safety Report 10495491 (Version 1)
Quarter: 2014Q3

REPORT INFORMATION
  Report Type: Spontaneous
  Country: US (occurrence: None)
  Receive Date: 20140815
  Receipt Date: 20140815
  Transmission Date: 20150326
  Serious: Yes (Disabling, Other)
  Sender: FDA-Public Use
  Company Number: ADR-2014-00746

PATIENT
  Age: 73 Year
  Sex: Male

DRUGS (2)
  1. MIRALAX [Suspect]
     Active Substance: POLYETHYLENE GLYCOL 3350
  2. LIORESAL [Suspect]
     Active Substance: BACLOFEN
     Indication: CEREBROVASCULAR ACCIDENT

REACTIONS (5)
  - Bladder disorder [None]
  - Constipation [None]
  - Therapeutic response decreased [None]
  - Bowel movement irregularity [None]
  - Flatulence [None]
